FAERS Safety Report 4968874-3 (Version None)
Quarter: 2006Q2

REPORT INFORMATION
  Report Type: 
  Country: None (occurrence: None)
  Receive Date: 20060411
  Receipt Date: 20051019
  Transmission Date: 20061013
  Serious: Yes (Hospitalization)
  Sender: FDA-Public Use
  Company Number: HQWYE118620OCT05

PATIENT
  Sex: Female

DRUGS (9)
  1. ENBREL [Suspect]
     Indication: RHEUMATOID ARTHRITIS
     Route: 058
     Dates: start: 20050704, end: 20051008
  2. ISCOTIN [Suspect]
     Indication: DRUG USE FOR UNKNOWN INDICATION
     Route: 048
     Dates: start: 20050705, end: 20051008
  3. CYTOTEC [Concomitant]
     Route: 065
  4. LEVOTHYROXINE SODIUM [Concomitant]
     Route: 065
  5. RHEUMATREX [Concomitant]
     Dates: end: 20050801
  6. AZULFIDINE [Concomitant]
     Route: 065
  7. PREDNISOLONE [Concomitant]
     Route: 065
  8. ETODOLAC [Concomitant]
     Route: 065
  9. FOLIAMIN [Concomitant]

REACTIONS (4)
  - ALANINE AMINOTRANSFERASE INCREASED [None]
  - ASPARTATE AMINOTRANSFERASE INCREASED [None]
  - HEPATIC FUNCTION ABNORMAL [None]
  - JAUNDICE [None]
